FAERS Safety Report 6992900-3 (Version None)
Quarter: 2010Q3

REPORT INFORMATION
  Report Type: 
  Country: None (occurrence: None)
  Receive Date: 20100917
  Receipt Date: 20100909
  Transmission Date: 20110219
  Serious: Yes (Other)
  Sender: FDA-Public Use
  Company Number: GXKR2010GB10203

PATIENT
  Age: 46 Year
  Sex: Female
  Weight: 138 kg

DRUGS (17)
  1. OMEPRAZOLE (NGX) [Suspect]
     Indication: GASTROOESOPHAGEAL REFLUX DISEASE
     Dosage: 20 MG, UNK
     Route: 048
     Dates: start: 20060511, end: 20100727
  2. CETOSTEARYL ALCOHOL [Concomitant]
     Route: 065
  3. BISOPROLOL FUMARATE [Concomitant]
     Dosage: 10 MG, QD
     Route: 048
  4. DIGOXIN [Concomitant]
     Indication: ATRIAL FIBRILLATION
     Dosage: 250 UG, QD
     Route: 048
     Dates: start: 20040101
  5. DIGOXIN [Concomitant]
     Indication: CARDIAC FAILURE CHRONIC
  6. FERROUS SULFATE TAB [Concomitant]
     Dosage: 200 MG, QD
  7. FUROSEMIDE [Concomitant]
     Dosage: 80 MG, QD
     Route: 065
  8. GLICLAZIDE [Concomitant]
     Dosage: 80 MG, QD
     Route: 065
  9. ISOSORBIDE MONONITRATE [Concomitant]
     Dosage: 20 MG, BID
     Route: 065
  10. METFORMIN HYDROCHLORIDE [Concomitant]
     Dosage: 500 MG, TID
     Route: 065
     Dates: start: 20060101
  11. ACETAMINOPHEN [Concomitant]
     Dosage: 2 DF, QID
     Route: 065
  12. RAMIPRIL [Concomitant]
     Dosage: 10 MG, QD
  13. SIMVASTATIN [Concomitant]
     Dosage: 40 MG, QD
     Route: 065
  14. SITAGLIPTIN [Concomitant]
     Dosage: 100 MG, QD
     Route: 065
  15. TRAZODONE HYDROCHLORIDE [Concomitant]
     Dosage: 75 MG, QD
     Route: 065
  16. WARFARIN SODIUM [Concomitant]
     Indication: ATRIAL FIBRILLATION
     Dosage: UNK
     Route: 048
     Dates: start: 20040101
  17. WARFARIN SODIUM [Concomitant]
     Indication: CARDIAC FAILURE CHRONIC

REACTIONS (2)
  - HYPOCALCAEMIA [None]
  - TETANY [None]
